FAERS Safety Report 6223528-0 (Version None)
Quarter: 2009Q2

REPORT INFORMATION
  Report Type: 
  Country: None (occurrence: None)
  Receive Date: 20090610
  Receipt Date: 20080311
  Transmission Date: 20091009
  Serious: Yes (Hospitalization, Other)
  Sender: FDA-Public Use
  Company Number: 2008AP000643

PATIENT
  Age: 50 Year
  Sex: Female

DRUGS (12)
  1. METFORMIN HCL [Suspect]
  2. HYDROCHLOROTHIAZDE TAB [Suspect]
  3. CELECOXIB [Concomitant]
     Indication: ARTHRALGIA
  4. CANDESARTAN [Concomitant]
  5. LEVOTHYROXINE SODIUM [Concomitant]
  6. GALENIC/ PARACETAMOL/ CODEINE/ [Concomitant]
  7. ACETYLSALICYLIC ACID [Concomitant]
  8. SIMVASTATIN [Concomitant]
  9. OMEPRAZOLE [Concomitant]
  10. PREGABALIN [Concomitant]
  11. TIZANIDINE [Concomitant]
  12. ARIPIPRAZOLE [Concomitant]

REACTIONS (16)
  - ASTHENIA [None]
  - BLOOD GLUCOSE DECREASED [None]
  - BLOOD PRESSURE DIASTOLIC DECREASED [None]
  - DRUG INTERACTION [None]
  - DRUG SCREEN POSITIVE [None]
  - ELECTROCARDIOGRAM QRS COMPLEX PROLONGED [None]
  - HAEMATEMESIS [None]
  - HAEMODIALYSIS [None]
  - LACTIC ACIDOSIS [None]
  - OCCULT BLOOD POSITIVE [None]
  - PANCREATITIS ACUTE [None]
  - RENAL FAILURE ACUTE [None]
  - RENAL IMPAIRMENT [None]
  - SINUS TACHYCARDIA [None]
  - SOMNOLENCE [None]
  - VENTRICULAR EXTRASYSTOLES [None]
